FAERS Safety Report 23417477 (Version 1)
Quarter: 2024Q1

REPORT INFORMATION
  Report Type: Other
  Country: None (occurrence: US)
  Receive Date: 20240118
  Receipt Date: 20240118
  Transmission Date: 20240410
  Serious: Yes (Other)
  Sender: FDA-Public Use
  Company Number: US-Fagron Sterile Services-2151527

PATIENT
  Age: 79 Year
  Sex: Female
  Weight: 68.2 kg

DRUGS (1)
  1. EPHEDRINE SULFATE [Suspect]
     Active Substance: EPHEDRINE SULFATE

REACTIONS (1)
  - Adverse reaction [None]
